FAERS Safety Report 25975099 (Version 2)
Quarter: 2025Q4

REPORT INFORMATION
  Report Type: Spontaneous
  Country: EU (occurrence: EU)
  Receive Date: 20251029
  Receipt Date: 20251224
  Transmission Date: 20260117
  Serious: Yes (Other)
  Sender: JOHNSON AND JOHNSON
  Company Number: EU-DCGMA-25205957

PATIENT
  Age: 39 Year
  Sex: Female
  Weight: 64 kg

DRUGS (1)
  1. REMICADE [Suspect]
     Active Substance: INFLIXIMAB
     Indication: Crohn^s disease
     Dosage: DAILY DOSE: 500 MG EVERY 56 DAYS
     Route: 041
     Dates: start: 2015

REACTIONS (2)
  - Peripheral vein thrombosis [Unknown]
  - Antiphospholipid syndrome [Unknown]

NARRATIVE: CASE EVENT DATE: 20250501
